FAERS Safety Report 10273073 (Version 1)
Quarter: 2014Q3

REPORT INFORMATION
  Report Type: Spontaneous
  Country: JP (occurrence: JP)
  Receive Date: 20140702
  Receipt Date: 20140702
  Transmission Date: 20150326
  Serious: Yes (Other)
  Sender: FDA-Public Use
  Company Number: JP-ASTRAZENECA-2014SE46951

PATIENT
  Age: 78 Year
  Sex: Female

DRUGS (7)
  1. SENNOSIDE [Concomitant]
     Active Substance: SENNOSIDES
     Dosage: DOSE UNKNOWN
     Route: 048
  2. ARIMIDEX [Suspect]
     Active Substance: ANASTROZOLE
     Indication: BREAST CANCER
     Route: 048
     Dates: start: 20140110
  3. BROTIZOLAM OD [Concomitant]
     Dosage: DOSE UNKNOWN
     Route: 048
  4. PROTECADIN [Concomitant]
     Active Substance: LAFUTIDINE
     Dosage: DOSE UNKNOWN
     Route: 048
  5. MOSAPRIDE CITRATE HYDRATE [Concomitant]
     Active Substance: MOSAPRIDE CITRATE DIHYDRATE
     Dosage: DOSE UNKNOWN
     Route: 065
  6. ADETPHOS [Concomitant]
     Active Substance: ADENOSINE TRIPHOSPHATE
     Dosage: DOSE UNKNOWN
     Route: 048
  7. DIFENIDOL HYDROCHLORIDE [Concomitant]
     Dosage: DOSE UNKNOWN
     Route: 048

REACTIONS (2)
  - Visual field defect [None]
  - Scintillating scotoma [Recovered/Resolved]

NARRATIVE: CASE EVENT DATE: 20140613
